FAERS Safety Report 16329448 (Version 1)
Quarter: 2019Q2

REPORT INFORMATION
  Report Type: Spontaneous
  Country: BE (occurrence: BE)
  Receive Date: 20190520
  Receipt Date: 20190520
  Transmission Date: 20190711
  Serious: Yes (Death, Hospitalization, Other)
  Sender: FDA-Public Use
  Company Number: BE-SA-2018SA182497

PATIENT
  Age: 55 Year
  Sex: Male

DRUGS (6)
  1. MOTIFENE [Concomitant]
     Active Substance: DICLOFENAC SODIUM
     Dosage: 75 MG, BID
  2. SPIRONOLACTON [Concomitant]
     Active Substance: SPIRONOLACTONE
     Dosage: 25 MG, QD
  3. AUBAGIO [Suspect]
     Active Substance: TERIFLUNOMIDE
     Indication: RELAPSING-REMITTING MULTIPLE SCLEROSIS
     Dosage: 14 MG, QD
     Route: 048
     Dates: start: 2014, end: 20180702
  4. ZESTRIL [Concomitant]
     Active Substance: LISINOPRIL
     Dosage: 5 MG, QD
  5. KREDEX [Concomitant]
     Active Substance: CARVEDILOL
     Dosage: 6,25(NOS); 1/2 CP, 2XDAY
  6. FAMPYRA [Concomitant]
     Active Substance: DALFAMPRIDINE
     Dosage: 10 (NOS) 2XDAY

REACTIONS (5)
  - Gastrointestinal haemorrhage [Fatal]
  - Septic shock [Fatal]
  - Dyspnoea [Not Recovered/Not Resolved]
  - Bronchopulmonary aspergillosis [Not Recovered/Not Resolved]
  - Cough [Not Recovered/Not Resolved]

NARRATIVE: CASE EVENT DATE: 201807
